FAERS Safety Report 9726265 (Version 1)
Quarter: 2013Q4

REPORT INFORMATION
  Report Type: Spontaneous
  Country: US (occurrence: US)
  Receive Date: 20131203
  Receipt Date: 20131203
  Transmission Date: 20140711
  Serious: Yes (Hospitalization)
  Sender: FDA-Public Use
  Company Number: US-B.I. PHARMACEUTICALS,INC./RIDGEFIELD-2013-BI-39405BP

PATIENT
  Sex: Male
  Weight: 70 kg

DRUGS (1)
  1. COMBIVENT [Suspect]
     Indication: CHRONIC OBSTRUCTIVE PULMONARY DISEASE
     Dosage: STRENGTH: 20 MCG / 100 MCG; DAILY DOSE: 160 MCG/800 MCG
     Route: 055
     Dates: start: 2013

REACTIONS (5)
  - Intervertebral disc protrusion [Recovered/Resolved]
  - Blood pressure increased [Recovered/Resolved]
  - Erythema [Recovered/Resolved]
  - Drug effect delayed [Not Recovered/Not Resolved]
  - Prescribed overdose [Not Recovered/Not Resolved]
